FAERS Safety Report 5466335-9 (Version None)
Quarter: 2007Q3

REPORT INFORMATION
  Report Type: 
  Country: None (occurrence: None)
  Receive Date: 20070920
  Receipt Date: 20070911
  Transmission Date: 20080115
  Serious: Yes (Hospitalization)
  Sender: FDA-Public Use
  Company Number: JPI-P-002142

PATIENT
  Age: 51 Year
  Sex: Male
  Weight: 75.7507 kg

DRUGS (14)
  1. XYREM [Suspect]
     Indication: FATIGUE
     Dosage: 6 GM (3 GM, 2 IN 1 D), ORAL
     Route: 048
     Dates: start: 20030728
  2. XYREM [Suspect]
     Indication: FIBROMYALGIA
     Dosage: 6 GM (3 GM, 2 IN 1 D), ORAL
     Route: 048
     Dates: start: 20030728
  3. XYREM [Suspect]
     Indication: SLEEP DISORDER
     Dosage: 6 GM (3 GM, 2 IN 1 D), ORAL
     Route: 048
     Dates: start: 20030728
  4. METHADONE HCL [Concomitant]
  5. POLYETHYLENE GLYCOL (MACROGOL) [Concomitant]
  6. ASPIRIN [Concomitant]
  7. KETOROLAC TROMETHAMINE [Concomitant]
  8. ROPINIROLE HYDROCHLORIDE (ROPINIROLE HYDROCHLORIDE) [Concomitant]
  9. METAXALONE [Concomitant]
  10. CLONAZEPAM [Concomitant]
  11. AMPHETAMINE SALTS (AMFETAMINE SULFATE) [Concomitant]
  12. LUBIPROSTONE (DOCUSATE SODIUM) [Concomitant]
  13. TOPIRAMATE [Concomitant]
  14. TAMSULOSIN HYDROCHLORIDE (TAMSULOSIN HYDROCHLORIDE) [Concomitant]

REACTIONS (11)
  - CONDITION AGGRAVATED [None]
  - DIARRHOEA [None]
  - FIBROMYALGIA [None]
  - INFLUENZA LIKE ILLNESS [None]
  - INSOMNIA [None]
  - NAUSEA [None]
  - NO THERAPEUTIC RESPONSE [None]
  - PAIN [None]
  - PAIN IN EXTREMITY [None]
  - STRESS [None]
  - VOMITING [None]
